FAERS Safety Report 7958010-3 (Version None)
Quarter: 2011Q4

REPORT INFORMATION
  Report Type: 
  Country: None (occurrence: None)
  Receive Date: 20111205
  Receipt Date: 20111116
  Transmission Date: 20120403
  Serious: No
  Sender: FDA-Public Use
  Company Number: US-BAYER-2011-111886

PATIENT
  Sex: Male

DRUGS (4)
  1. ALEVE (CAPLET) [Suspect]
     Indication: ARTHRITIS
     Dosage: 1 DF, TID
     Dates: start: 20111026, end: 20111116
  2. ASPIRIN [Concomitant]
  3. OMEPRAZOLE [Concomitant]
  4. METOPROLOL [Concomitant]

REACTIONS (2)
  - NO ADVERSE EVENT [None]
  - OEDEMA PERIPHERAL [None]
